FAERS Safety Report 17611445 (Version 1)
Quarter: 2020Q2

REPORT INFORMATION
  Report Type: Spontaneous
  Country: US (occurrence: US)
  Receive Date: 20200401
  Receipt Date: 20200401
  Transmission Date: 20200713
  Serious: Yes (Death, Hospitalization)
  Sender: FDA-Public Use
  Company Number: None

PATIENT
  Age: 41 Year
  Sex: Male

DRUGS (9)
  1. ATORVASTATIN [Concomitant]
     Active Substance: ATORVASTATIN
  2. LORATADINE. [Concomitant]
     Active Substance: LORATADINE
  3. FENTANYL. [Concomitant]
     Active Substance: FENTANYL
  4. HYDROCO/APAP [Concomitant]
     Active Substance: ACETAMINOPHEN\HYDROCODONE
  5. METHYLPRED [Concomitant]
     Active Substance: METHYLPREDNISOLONE
  6. ESCITALOPRAM [Concomitant]
     Active Substance: ESCITALOPRAM OXALATE
  7. FOLIC ACID. [Concomitant]
     Active Substance: FOLIC ACID
  8. ELIQUIS [Concomitant]
     Active Substance: APIXABAN
  9. PROMACTA [Suspect]
     Active Substance: ELTROMBOPAG OLAMINE
     Indication: PRODUCT USED FOR UNKNOWN INDICATION
     Route: 048
     Dates: end: 20200331

REACTIONS (1)
  - Death [None]

NARRATIVE: CASE EVENT DATE: 20200331
